FAERS Safety Report 23711610 (Version 3)
Quarter: 2024Q2

REPORT INFORMATION
  Report Type: Spontaneous
  Country: DE (occurrence: DE)
  Receive Date: 20240405
  Receipt Date: 20240619
  Transmission Date: 20240716
  Serious: Yes (Hospitalization, Other)
  Sender: FDA-Public Use
  Company Number: DE-002147023-NVSC2024DE072340

PATIENT
  Sex: Male

DRUGS (1)
  1. KESIMPTA [Suspect]
     Active Substance: OFATUMUMAB
     Indication: Relapsing multiple sclerosis
     Dosage: 20 MG, QMO
     Route: 065
     Dates: start: 202311

REACTIONS (9)
  - Cerebrovascular accident [Recovered/Resolved]
  - Cerebral ischaemia [Recovered/Resolved]
  - Aphasia [Recovered/Resolved]
  - Cardiovascular disorder [Recovered/Resolved]
  - Hemiplegia [Recovered/Resolved]
  - Bezoar [Unknown]
  - Constipation [Not Recovered/Not Resolved]
  - Pyrexia [Unknown]
  - Chills [Unknown]

NARRATIVE: CASE EVENT DATE: 20230101
